FAERS Safety Report 4303954-7 (Version None)
Quarter: 2004Q1

REPORT INFORMATION
  Report Type: 
  Country: None (occurrence: None)
  Receive Date: 20040225
  Receipt Date: 20040130
  Transmission Date: 20041129
  Serious: Yes (Death, Hospitalization)
  Sender: FDA-Public Use
  Company Number: GB-ROCHE-357837

PATIENT
  Age: 47 Year
  Sex: Female
  Weight: 85 kg

DRUGS (16)
  1. XELODA [Suspect]
     Route: 048
     Dates: start: 20031211, end: 20040119
  2. PHENYTOIN [Suspect]
     Indication: DRUG USE FOR UNKNOWN INDICATION
     Route: 048
     Dates: start: 20030216, end: 20040119
  3. ANASTROZOLE [Concomitant]
  4. CYCLOPHOSPHAMIDE [Concomitant]
  5. DOCETAXEL [Concomitant]
  6. EPIRUBICIN [Concomitant]
  7. EXEMESTANE [Concomitant]
  8. FLUOROURACIL [Concomitant]
  9. FOLINIC ACID [Concomitant]
  10. LETROZOLE [Concomitant]
  11. MEGESTROL [Concomitant]
  12. METHOTREXATE [Concomitant]
  13. MITOMYCIN [Concomitant]
  14. PACLITAXEL [Concomitant]
  15. TAMOXIFEN [Concomitant]
  16. MITOZANTRONE [Concomitant]

REACTIONS (1)
  - TOXIC EPIDERMAL NECROLYSIS [None]
